FAERS Safety Report 14222058 (Version 1)
Quarter: 2017Q4

REPORT INFORMATION
  Report Type: Spontaneous
  Country: US (occurrence: US)
  Receive Date: 20171124
  Receipt Date: 20171124
  Transmission Date: 20180321
  Serious: No
  Sender: FDA-Public Use
  Company Number: US-AMGEN-USASP2017175293

PATIENT
  Sex: Male

DRUGS (2)
  1. ENBREL [Suspect]
     Active Substance: ETANERCEPT
     Indication: PRODUCT USED FOR UNKNOWN INDICATION
     Dosage: UNK
     Route: 065
     Dates: start: 2015, end: 201710
  2. MTX [Concomitant]
     Active Substance: METHOTREXATE SODIUM
     Dosage: UNK
     Dates: end: 201710

REACTIONS (3)
  - Condition aggravated [Unknown]
  - Drug ineffective [Unknown]
  - Carpal tunnel syndrome [Unknown]

NARRATIVE: CASE EVENT DATE: 2017
